FAERS Safety Report 5045276-5 (Version None)
Quarter: 2006Q3

REPORT INFORMATION
  Report Type: 
  Country: None (occurrence: None)
  Receive Date: 20060707
  Receipt Date: 20060628
  Transmission Date: 20061208
  Serious: Yes (Other)
  Sender: FDA-Public Use
  Company Number: US-KINGPHARMUSA00001-K200600852

PATIENT
  Age: 14 Year
  Sex: Female

DRUGS (1)
  1. FLORINEF [Suspect]
     Indication: HYPOTENSION

REACTIONS (1)
  - ANGIONEUROTIC OEDEMA [None]
